FAERS Safety Report 8455715-5 (Version None)
Quarter: 2012Q2

REPORT INFORMATION
  Report Type: 
  Country: None (occurrence: None)
  Receive Date: 20120621
  Receipt Date: 20120612
  Transmission Date: 20120825
  Serious: Yes (Other)
  Sender: FDA-Public Use
  Company Number: US-ASTRAZENECA-2012SE39149

PATIENT
  Sex: Female

DRUGS (4)
  1. NEXIUM [Suspect]
     Route: 048
  2. PRENAZONE [Concomitant]
  3. BENEVA [Concomitant]
  4. ZEPAC [Concomitant]

REACTIONS (3)
  - ASTHMA [None]
  - BREAST CANCER [None]
  - MULTIPLE ALLERGIES [None]
